FAERS Safety Report 8370039-2 (Version None)
Quarter: 2012Q2

REPORT INFORMATION
  Report Type: 
  Country: None (occurrence: None)
  Receive Date: 20120518
  Receipt Date: 20120514
  Transmission Date: 20120825
  Serious: Yes (Other)
  Sender: FDA-Public Use
  Company Number: PHEH2012US001638

PATIENT
  Sex: Female

DRUGS (1)
  1. GILENYA [Suspect]
     Indication: MULTIPLE SCLEROSIS
     Dosage: 0.5 MG, QD
     Route: 048
     Dates: start: 20110801, end: 20120131

REACTIONS (6)
  - EYE DISORDER [None]
  - MULTIPLE SCLEROSIS RELAPSE [None]
  - EYE IRRITATION [None]
  - GAIT DISTURBANCE [None]
  - FALL [None]
  - WEIGHT INCREASED [None]
